FAERS Safety Report 6878301-7 (Version None)
Quarter: 2010Q3

REPORT INFORMATION
  Report Type: 
  Country: None (occurrence: None)
  Receive Date: 20100728
  Receipt Date: 20100719
  Transmission Date: 20110219
  Serious: Yes (Death, Other)
  Sender: FDA-Public Use
  Company Number: BR-PFIZER INC-2010089712

PATIENT
  Age: 65 Year
  Sex: Male

DRUGS (4)
  1. VIAGRA [Suspect]
     Dosage: 50MG, EVERY 3 DAYS
     Route: 048
     Dates: end: 20100712
  2. SILDENAFIL CITRATE [Concomitant]
     Indication: ERECTILE DYSFUNCTION
     Dosage: UNK
  3. DICLOFENAC [Concomitant]
     Indication: BACK PAIN
     Dosage: UNK
  4. DICLOFENAC [Concomitant]
     Indication: PAIN IN EXTREMITY

REACTIONS (5)
  - BLOOD GLUCOSE INCREASED [None]
  - BLOOD PRESSURE INCREASED [None]
  - DEATH [None]
  - DRUG INEFFECTIVE [None]
  - FALL [None]
